FAERS Safety Report 7653655-2 (Version None)
Quarter: 2011Q3

REPORT INFORMATION
  Report Type: 
  Country: None (occurrence: None)
  Receive Date: 20110803
  Receipt Date: 20110727
  Transmission Date: 20111222
  Serious: Yes (Hospitalization, Disabling, Other)
  Sender: FDA-Public Use
  Company Number: AU-PFIZER INC-2011146855

PATIENT
  Age: 27 Year
  Sex: Male

DRUGS (3)
  1. BOSENTAN [Concomitant]
     Indication: PULMONARY ARTERIAL HYPERTENSION
     Dosage: 125 MG, 2X/DAY
     Route: 048
     Dates: start: 20091014
  2. REVATIO [Suspect]
     Indication: PULMONARY ARTERIAL HYPERTENSION
     Dosage: 40 MG, 3X/DAY
     Route: 048
     Dates: start: 20090703, end: 20110629
  3. EPOPROSTENOL [Concomitant]
     Indication: PULMONARY ARTERIAL HYPERTENSION
     Dosage: 3000 UG, 1X/DAY AT 5.2 ML PER HOUR
     Route: 042
     Dates: start: 20090703

REACTIONS (5)
  - BLINDNESS UNILATERAL [None]
  - RETINAL INFARCTION [None]
  - RETINAL EXUDATES [None]
  - HEMIANOPIA [None]
  - RETINAL HAEMORRHAGE [None]
